FAERS Safety Report 8153321-3 (Version None)
Quarter: 2012Q1

REPORT INFORMATION
  Report Type: 
  Country: None (occurrence: None)
  Receive Date: 20120221
  Receipt Date: 20120209
  Transmission Date: 20120608
  Serious: Yes (Hospitalization)
  Sender: FDA-Public Use
  Company Number: DE-ROCHE-1029181

PATIENT
  Age: 4 Year
  Sex: Female

DRUGS (14)
  1. CALCIUM CARBONATE [Concomitant]
     Dates: end: 20111230
  2. ZINKOROTAT [Concomitant]
  3. SODIUM BICARBONATE [Concomitant]
  4. ERGOCALCIFEROL [Concomitant]
  5. NEORECORMON [Concomitant]
     Dates: start: 20111028
  6. GENOTROPIN [Concomitant]
  7. AMLODIPINE [Concomitant]
     Dates: start: 20111108
  8. SEVELAMER [Concomitant]
  9. OMEPRAZOLE [Concomitant]
  10. ALFACALCIDOL [Concomitant]
     Dates: start: 20110825
  11. SODIUM CHLORIDE [Concomitant]
  12. MABTHERA [Suspect]
     Indication: AUTOIMMUNE DISORDER
     Route: 042
     Dates: start: 20111219, end: 20111227
  13. LEVOTHYROXINE SODIUM [Concomitant]
  14. PREDNISOLONE [Concomitant]

REACTIONS (2)
  - THROMBOCYTOPENIA [None]
  - LEUKOPENIA [None]
